FAERS Safety Report 6428195-9 (Version None)
Quarter: 2009Q4

REPORT INFORMATION
  Report Type: 
  Country: None (occurrence: None)
  Receive Date: 20091105
  Receipt Date: 20091026
  Transmission Date: 20100525
  Serious: Yes (Life-Threatening, Hospitalization)
  Sender: FDA-Public Use
  Company Number: DK-NOVOPROD-290838

PATIENT
  Age: 76 Year
  Sex: Female
  Weight: 80 kg

DRUGS (5)
  1. VAGIFEM [Suspect]
     Indication: UTERINE PROLAPSE
     Dosage: 2  DOSES A WEEK
     Dates: start: 20080916, end: 20081216
  2. VAGIFEM [Suspect]
     Indication: GENITAL DISCOMFORT
  3. ELTROXIN [Concomitant]
     Indication: HYPOTHYROIDISM
     Dosage: 50 MG, QD
     Route: 048
     Dates: start: 20050101
  4. DIOVAN                             /01319601/ [Concomitant]
     Indication: HYPERTENSION
     Dosage: 80 MG, QD
     Route: 048
     Dates: start: 20070201
  5. CENTYL MITE W/POTASSIUM CHLORIDE [Concomitant]
     Indication: DRUG USE FOR UNKNOWN INDICATION
     Dosage: UNK
     Dates: start: 20030101

REACTIONS (3)
  - DEEP VEIN THROMBOSIS [None]
  - SENSORY DISTURBANCE [None]
  - VISUAL IMPAIRMENT [None]
